FAERS Safety Report 18818644 (Version 2)
Quarter: 2021Q2

REPORT INFORMATION
  Report Type: Spontaneous
  Country: US (occurrence: US)
  Receive Date: 20210201
  Receipt Date: 20210524
  Transmission Date: 20210717
  Serious: Yes (Other)
  Sender: FDA-Public Use
  Company Number: US-ELI_LILLY_AND_COMPANY-US202101010184

PATIENT
  Age: 47 Year
  Sex: Female

DRUGS (3)
  1. BASAGLAR [Suspect]
     Active Substance: INSULIN GLARGINE
     Indication: DIABETES MELLITUS
     Dosage: 66 U, EACH EVENING
     Route: 058
     Dates: start: 2019
  2. BASAGLAR [Suspect]
     Active Substance: INSULIN GLARGINE
     Dosage: 35 U, BID
     Route: 058
     Dates: start: 20210416
  3. BASAGLAR [Suspect]
     Active Substance: INSULIN GLARGINE
     Dosage: 66 U, EACH EVENING
     Route: 058

REACTIONS (7)
  - Visual impairment [Not Recovered/Not Resolved]
  - Incorrect product administration duration [Unknown]
  - Renal failure [Not Recovered/Not Resolved]
  - Underdose [Unknown]
  - Inappropriate schedule of product administration [Unknown]
  - Blood glucose fluctuation [Unknown]
  - Blood glucose increased [Recovered/Resolved]

NARRATIVE: CASE EVENT DATE: 202012
